FAERS Safety Report 25954351 (Version 1)
Quarter: 2025Q4

REPORT INFORMATION
  Report Type: Report from Study
  Country: EU (occurrence: EU)
  Receive Date: 20251023
  Receipt Date: 20251023
  Transmission Date: 20260118
  Serious: Yes (Death, Hospitalization, Other)
  Sender: ABBVIE
  Company Number: EU-ABBVIE-6491425

PATIENT
  Age: 74 Year
  Sex: Female

DRUGS (1)
  1. FOSCARBIDOPA\FOSLEVODOPA [Suspect]
     Active Substance: FOSCARBIDOPA\FOSLEVODOPA
     Indication: Parkinson^s disease
     Dosage: LD: 0.6ML CR: LOW: 0.19ML/H BASE: 0.21ML/H HIGH: 0.24ML/H ED: 0.20ML.?LAST ADMIN DATE: SEP 2025
     Route: 058
     Dates: start: 20250805

REACTIONS (5)
  - Multiple organ dysfunction syndrome [Fatal]
  - Peripheral swelling [Recovered/Resolved]
  - Hypoglycaemia [Not Recovered/Not Resolved]
  - Lethargy [Not Recovered/Not Resolved]
  - Endotracheal intubation [Not Recovered/Not Resolved]

NARRATIVE: CASE EVENT DATE: 20250901
